FAERS Safety Report 6453764-X (Version None)
Quarter: 2009Q4

REPORT INFORMATION
  Report Type: 
  Country: None (occurrence: None)
  Receive Date: 20091117
  Receipt Date: 20091103
  Transmission Date: 20100525
  Serious: Yes (Hospitalization)
  Sender: FDA-Public Use
  Company Number: 08-PDX10-00826

PATIENT
  Age: 43 Year
  Sex: Male
  Weight: 61.7 kg

DRUGS (7)
  1. PRALATREXATE (20 MG/ML, INJECTION FOR INFUSION) [Suspect]
     Indication: T-CELL LYMPHOMA
     Dosage: 270 MG/M2 (270 MG/M2, 1 IN 2 WK), IV
     Route: 042
     Dates: start: 20080327
  2. CYANOCOBALAMIN [Concomitant]
  3. FOLIC ACID [Concomitant]
  4. OXYCODONE HCL [Concomitant]
  5. DOCUSATE [Concomitant]
  6. DOCUSATE/SODIUM [Concomitant]
  7. MULTI-VITAMIN [Concomitant]

REACTIONS (5)
  - MALIGNANT NEOPLASM PROGRESSION [None]
  - OESOPHAGITIS [None]
  - PHARYNGEAL INFLAMMATION [None]
  - STOMATITIS [None]
  - T-CELL LYMPHOMA [None]
